FAERS Safety Report 19641817 (Version 1)
Quarter: 2021Q3

REPORT INFORMATION
  Report Type: Spontaneous
  Country: US (occurrence: US)
  Receive Date: 20210731
  Receipt Date: 20210731
  Transmission Date: 20211014
  Serious: Yes (Hospitalization)
  Sender: FDA-Public Use
  Company Number: US-STRIDES ARCOLAB LIMITED-2020SP016159

PATIENT
  Age: 38 Year
  Sex: Male

DRUGS (7)
  1. AMANTADINE HYDROCHLORIDE. [Suspect]
     Active Substance: AMANTADINE HYDROCHLORIDE
     Indication: TOURETTE^S DISORDER
     Dosage: 100 MILLIGRAM, TID
     Route: 065
  2. GUANFACINE. [Suspect]
     Active Substance: GUANFACINE
     Dosage: 2 MILLIGRAM EVERY EVENING
     Route: 065
  3. PAROXETINE. [Suspect]
     Active Substance: PAROXETINE
     Indication: TOURETTE^S DISORDER
     Dosage: 20 MILLIGRAM, EVERY MORNING
     Route: 065
  4. OLANZAPINE. [Suspect]
     Active Substance: OLANZAPINE
     Indication: TOURETTE^S DISORDER
     Dosage: 20 MILLIGRAM, EVERY NIGHT
     Route: 065
  5. ATORVASTATIN [Suspect]
     Active Substance: ATORVASTATIN
     Indication: TOURETTE^S DISORDER
     Dosage: 10 MILLIGRAM, EVERY NIGHT
     Route: 065
  6. PAROXETINE. [Suspect]
     Active Substance: PAROXETINE
     Dosage: 60 MILLIGRAM, EVERY EVENING
     Route: 065
  7. GUANFACINE. [Suspect]
     Active Substance: GUANFACINE
     Indication: TOURETTE^S DISORDER
     Dosage: 1 MILLIGRAM, EVERY MORNING
     Route: 065

REACTIONS (1)
  - Drug ineffective for unapproved indication [Unknown]
